FAERS Safety Report 25150009 (Version 2)
Quarter: 2025Q4

REPORT INFORMATION
  Report Type: Spontaneous
  Country: CA (occurrence: CA)
  Receive Date: 20250402
  Receipt Date: 20251016
  Transmission Date: 20260119
  Serious: Yes (Other)
  Sender: PFIZER
  Company Number: CA-PFIZER INC-202400235739

PATIENT
  Age: 75 Year
  Sex: Male

DRUGS (7)
  1. RUXIENCE [Suspect]
     Active Substance: RITUXIMAB-PVVR
     Indication: Microscopic polyangiitis
     Dosage: 1000 MG,DAY 1 AND DAY 15 THEN 1000MG EVERY 6 MONTHS
     Route: 042
     Dates: start: 20240816
  2. RUXIENCE [Suspect]
     Active Substance: RITUXIMAB-PVVR
     Indication: Anti-neutrophil cytoplasmic antibody positive vasculitis
     Dosage: 1000 MG, DAY 1 AND DAY 15 THEN 1000MG EVERY 6 MONTHS
     Route: 042
     Dates: start: 20240830
  3. RUXIENCE [Suspect]
     Active Substance: RITUXIMAB-PVVR
     Dosage: 1000 MG (DAY 1 AND DAY 15 THEN 1000MG EVERY 6 MONTHS)
     Route: 042
     Dates: start: 20250327
  4. RUXIENCE [Suspect]
     Active Substance: RITUXIMAB-PVVR
     Dosage: 1000 MG,DAY 1 AND DAY 15 THEN 1000MG EVERY 6 MONTHS
     Route: 042
     Dates: start: 20250925
  5. ACETAMINOPHEN [Concomitant]
     Active Substance: ACETAMINOPHEN
     Indication: Premedication
     Dosage: 650 MG
     Dates: start: 20250327, end: 20250327
  6. DIPHENHYDRAMINE [Concomitant]
     Active Substance: DIPHENHYDRAMINE
     Indication: Premedication
     Dosage: 50 MG
     Dates: start: 20250327, end: 20250327
  7. METHYLPREDNISOLONE [Concomitant]
     Active Substance: METHYLPREDNISOLONE
     Indication: Premedication
     Dosage: 100 MG
     Dates: start: 20250327, end: 20250327

REACTIONS (5)
  - Nausea [Recovered/Resolved]
  - Dizziness [Recovered/Resolved]
  - Feeling hot [Recovered/Resolved]
  - Pallor [Recovered/Resolved]
  - Off label use [Unknown]

NARRATIVE: CASE EVENT DATE: 20250327
